FAERS Safety Report 4672893-4 (Version None)
Quarter: 2005Q2

REPORT INFORMATION
  Report Type: 
  Country: None (occurrence: None)
  Receive Date: 20050523
  Receipt Date: 20050512
  Transmission Date: 20051028
  Serious: Yes (Hospitalization)
  Sender: FDA-Public Use
  Company Number: US-2005-004065

PATIENT
  Age: 54 Year
  Sex: Female

DRUGS (3)
  1. BETASERON [Suspect]
     Indication: RELAPSING-REMITTING MULTIPLE SCLEROSIS
     Dosage: 8 MIU EVERY 2D SUBCUTANEOUS
     Route: 058
     Dates: start: 20040506, end: 20050301
  2. FOLIC ACID [Concomitant]
  3. VITAMIN B-12 [Concomitant]

REACTIONS (9)
  - BLOOD FOLATE DECREASED [None]
  - CONDITION AGGRAVATED [None]
  - HYPOAESTHESIA [None]
  - MENTAL DISORDER [None]
  - MULTIPLE SCLEROSIS [None]
  - OEDEMA PERIPHERAL [None]
  - RED BLOOD CELL COUNT DECREASED [None]
  - VITAMIN B12 DECREASED [None]
  - WHITE BLOOD CELL COUNT DECREASED [None]
